FAERS Safety Report 5714837-X (Version None)
Quarter: 2008Q2

REPORT INFORMATION
  Report Type: 
  Country: None (occurrence: None)
  Receive Date: 20080423
  Receipt Date: 20070321
  Transmission Date: 20081010
  Serious: No
  Sender: FDA-Public Use
  Company Number: US-BAYER-US-2007-010104

PATIENT
  Age: 47 Year
  Sex: Female

DRUGS (1)
  1. LEUKINE [Suspect]
     Route: 058
     Dates: end: 20070317

REACTIONS (5)
  - ABDOMINAL PAIN LOWER [None]
  - ANOREXIA [None]
  - DEFAECATION URGENCY [None]
  - DYSPNOEA [None]
  - HOT FLUSH [None]
